FAERS Safety Report 11156075 (Version 2)
Quarter: 2015Q3

REPORT INFORMATION
  Report Type: Report from Study
  Country: DE (occurrence: DE)
  Receive Date: 20150602
  Receipt Date: 20150707
  Transmission Date: 20151125
  Serious: Yes (Other)
  Sender: FDA-Public Use
  Company Number: DE-SA-2014SA009536

PATIENT
  Sex: Female

DRUGS (5)
  1. GABAPENTIN. [Concomitant]
     Active Substance: GABAPENTIN
     Indication: NEURALGIA
     Dosage: 300-300-600
     Route: 048
     Dates: start: 2011
  2. AUBAGIO [Suspect]
     Active Substance: TERIFLUNOMIDE
     Indication: MULTIPLE SCLEROSIS
     Route: 048
     Dates: start: 20140115
  3. OXCARBAZEPINE. [Concomitant]
     Active Substance: OXCARBAZEPINE
     Indication: NEURALGIA
     Dosage: 1-0-1
     Route: 048
     Dates: start: 201302
  4. BISOPROLOL [Concomitant]
     Active Substance: BISOPROLOL
     Indication: HEART RATE INCREASED
     Route: 048
     Dates: end: 20140209
  5. BISOPROLOL [Concomitant]
     Active Substance: BISOPROLOL
     Indication: HEART RATE INCREASED
     Route: 048
     Dates: start: 201402

REACTIONS (10)
  - Cough [Not Recovered/Not Resolved]
  - Gait disturbance [Recovering/Resolving]
  - Pertussis [Not Recovered/Not Resolved]
  - Paraesthesia [Unknown]
  - Blood pressure increased [Recovered/Resolved]
  - Alopecia [Not Recovered/Not Resolved]
  - Heart rate increased [Recovered/Resolved]
  - Pyrexia [Not Recovered/Not Resolved]
  - Multiple sclerosis relapse [Unknown]
  - Gait disturbance [Unknown]

NARRATIVE: CASE EVENT DATE: 2014
